FAERS Safety Report 23338880 (Version 1)
Quarter: 2023Q4

REPORT INFORMATION
  Report Type: Spontaneous
  Country: US (occurrence: None)
  Receive Date: 20231225
  Receipt Date: 20231225
  Transmission Date: 20240110
  Serious: Yes (Disabling)
  Sender: FDA-Public Use
  Company Number: None

PATIENT
  Age: 40 Year
  Sex: Female
  Weight: 72 kg

DRUGS (1)
  1. APRISO [Suspect]
     Active Substance: MESALAMINE
     Indication: Colitis ulcerative
     Dosage: OTHER QUANTITY : 4 CAPSULE(S);?
     Route: 048
     Dates: start: 20180601, end: 20210910

REACTIONS (4)
  - Asthenia [None]
  - Fatigue [None]
  - Myalgia [None]
  - Therapy cessation [None]

NARRATIVE: CASE EVENT DATE: 20210908
